FAERS Safety Report 6409663-2 (Version None)
Quarter: 2009Q4

REPORT INFORMATION
  Report Type: 
  Country: None (occurrence: None)
  Receive Date: 20091021
  Receipt Date: 20091021
  Transmission Date: 20100525
  Serious: Yes (Disabling)
  Sender: FDA-Public Use
  Company Number: None

PATIENT
  Age: 26 Year
  Sex: Female

DRUGS (1)
  1. PHENERGAN HCL [Suspect]
     Dosage: 35 MG

REACTIONS (5)
  - AKATHISIA [None]
  - ANXIETY [None]
  - NAUSEA [None]
  - PRURITUS [None]
  - VOMITING [None]
